FAERS Safety Report 5170241-7 (Version None)
Quarter: 2006Q4

REPORT INFORMATION
  Report Type: 
  Country: None (occurrence: None)
  Receive Date: 20061204
  Receipt Date: 20061124
  Transmission Date: 20070319
  Serious: Yes (Hospitalization)
  Sender: FDA-Public Use
  Company Number: 2006145516

PATIENT
  Age: 17 Year
  Sex: Female

DRUGS (8)
  1. XANAX [Suspect]
     Indication: INTENTIONAL OVERDOSE
     Dosage: 2.5 GRAM, ORAL
     Route: 048
     Dates: start: 20061015, end: 20061015
  2. PSEUDOEPHEDRINE (PSEUDOEPHEDRINE) [Suspect]
     Indication: INTENTIONAL OVERDOSE
     Dosage: 900 MG, ORAL
     Route: 048
     Dates: start: 20061015, end: 20061015
  3. ACETAMINOPHEN [Suspect]
     Indication: INTENTIONAL OVERDOSE
     Dosage: 2.5 GRAM, ORAL
     Route: 048
     Dates: start: 20061015, end: 20061015
  4. IBUPROFEN [Suspect]
     Indication: INTENTIONAL OVERDOSE
     Dosage: 4000 MG, ORAL
     Route: 048
     Dates: start: 20061015, end: 20061015
  5. SAVARINE (CHLOROQUINE, PROGUANIL HYDROCHLORIDE) [Suspect]
     Indication: INTENTIONAL OVERDOSE
     Dosage: 4 GRAM, ORAL
     Route: 048
     Dates: start: 20061015, end: 20061015
  6. RODOGYL (METRONIDAZOLE, SPIRAMYCIN) [Suspect]
     Indication: INTENTIONAL OVERDOSE
     Dosage: ORAL
     Route: 048
     Dates: start: 20061015, end: 20061015
  7. DICLOFENAC SODIUM [Suspect]
     Indication: INTENTIONAL OVERDOSE
     Dosage: 250 MG, ORAL
     Route: 048
     Dates: start: 20061015, end: 20061015
  8. ACECLOFENAC (ACECLOFENAC) [Suspect]
     Indication: INTENTIONAL OVERDOSE
     Dosage: ORAL
     Route: 048
     Dates: start: 20061015, end: 20061015

REACTIONS (3)
  - DIARRHOEA [None]
  - MULTIPLE DRUG OVERDOSE INTENTIONAL [None]
  - VOMITING [None]
